FAERS Safety Report 6143200-5 (Version None)
Quarter: 2009Q2

REPORT INFORMATION
  Report Type: 
  Country: None (occurrence: None)
  Receive Date: 20090403
  Receipt Date: 20041119
  Transmission Date: 20091009
  Serious: Yes (Hospitalization)
  Sender: FDA-Public Use
  Company Number: DE-ROCHE-349411

PATIENT
  Sex: Female

DRUGS (64)
  1. MYCOPHENOLATE MOFETIL [Suspect]
     Route: 048
     Dates: start: 20030921, end: 20031016
  2. MYCOPHENOLATE MOFETIL [Suspect]
     Route: 048
     Dates: start: 20031022, end: 20040310
  3. DACLIZUMAB [Suspect]
     Dosage: BASELINE VISIT
     Route: 042
     Dates: start: 20030921
  4. DACLIZUMAB [Suspect]
     Dosage: WEEK 2 VISIT.
     Route: 042
     Dates: start: 20031004
  5. DACLIZUMAB [Suspect]
     Dosage: WEEK 4 VISIT
     Route: 042
     Dates: start: 20031018
  6. DACLIZUMAB [Suspect]
     Dosage: WEEK 6 VISIT
     Route: 042
     Dates: start: 20031103
  7. DACLIZUMAB [Suspect]
     Dosage: WEEK 8 VISIT
     Route: 042
     Dates: start: 20031113
  8. MYCOPHENOLATE MOFETIL [Suspect]
     Route: 048
     Dates: start: 20040311
  9. CYCLOSPORINE [Suspect]
     Dosage: DRUG NAME: CYCLOSPORIN
     Route: 048
     Dates: start: 20030921
  10. CYCLOSPORINE [Suspect]
     Route: 048
     Dates: start: 20030930
  11. CYCLOSPORINE [Suspect]
     Route: 048
     Dates: start: 20031010, end: 20031013
  12. CYCLOSPORINE [Suspect]
     Route: 048
     Dates: start: 20031014
  13. CYCLOSPORINE [Suspect]
     Route: 048
     Dates: start: 20031015
  14. CYCLOSPORINE [Suspect]
     Route: 048
     Dates: start: 20031016, end: 20031119
  15. CYCLOSPORINE [Suspect]
     Route: 048
     Dates: start: 20040220
  16. CYCLOSPORINE [Suspect]
     Route: 048
     Dates: start: 20040619
  17. CYCLOSPORINE [Suspect]
     Route: 048
     Dates: start: 20050321, end: 20050926
  18. CYCLOSPORINE [Suspect]
     Dosage: DRUG NAME: CYCLOSPORIN
     Route: 048
     Dates: start: 20031120, end: 20040219
  19. CYCLOSPORINE [Suspect]
     Route: 048
     Dates: start: 20050927
  20. CYCLOSPORINE [Suspect]
     Route: 048
     Dates: start: 20060407
  21. PREDNISOLONE [Suspect]
     Route: 042
     Dates: start: 20030921
  22. PREDNISOLONE [Suspect]
     Route: 042
     Dates: start: 20030922
  23. PREDNISOLONE [Suspect]
     Route: 042
     Dates: start: 20030930
  24. PREDNISOLONE [Suspect]
     Route: 048
     Dates: start: 20030922
  25. PREDNISOLONE [Suspect]
     Route: 048
     Dates: start: 20030922
  26. PREDNISOLONE [Suspect]
     Route: 048
     Dates: start: 20030925
  27. PREDNISOLONE [Suspect]
     Route: 048
     Dates: start: 20030928
  28. PREDNISOLONE [Suspect]
     Route: 048
     Dates: start: 20030930, end: 20031003
  29. PREDNISOLONE [Suspect]
     Route: 048
     Dates: start: 20031003
  30. PREDNISOLONE [Suspect]
     Route: 048
     Dates: start: 20031006
  31. PREDNISOLONE [Suspect]
     Route: 048
     Dates: start: 20031009
  32. PREDNISOLONE [Suspect]
     Route: 048
     Dates: start: 20031012
  33. PREDNISOLONE [Suspect]
     Route: 048
     Dates: start: 20031020
  34. PREDNISOLONE [Suspect]
     Route: 048
     Dates: start: 20031031
  35. PREDNISOLONE [Suspect]
     Route: 048
     Dates: start: 20031128
  36. PREDNISOLONE [Suspect]
     Route: 048
     Dates: start: 20031228
  37. PREDNISOLONE [Suspect]
     Route: 048
     Dates: start: 20040129
  38. PREDNISOLONE [Suspect]
     Route: 048
     Dates: start: 20040229
  39. PREDNISOLONE [Suspect]
     Route: 048
     Dates: start: 20040327
  40. PREDNISOLONE [Suspect]
     Route: 048
     Dates: start: 20040920
  41. EINSALPHA [Concomitant]
     Dosage: DRUG NAME: ALPHACALCIDOL
     Route: 048
     Dates: start: 20030921, end: 20031016
  42. DREISAVIT N [Concomitant]
     Dosage: DRUG NAME: DREISAVIT
     Route: 048
     Dates: start: 20030921, end: 20031013
  43. NORVASC [Concomitant]
     Dosage: DRUG NAME: AMLODIPIN
     Route: 048
     Dates: start: 20030920, end: 20040420
  44. PANTOZOL [Concomitant]
     Route: 048
  45. BELOC-ZOK MITE [Concomitant]
     Dosage: DRUG NAME: METOPROLOLSUCCINAT
     Route: 048
     Dates: start: 20030925
  46. LASIX [Concomitant]
     Dosage: DRUG NAME: FUROSEMID
     Route: 048
     Dates: start: 20031002, end: 20040106
  47. LASIX [Concomitant]
     Route: 048
     Dates: start: 20040107, end: 20040618
  48. ACTONEL [Concomitant]
     Route: 048
     Dates: start: 20030928
  49. AMPHOTERICIN B [Concomitant]
     Dosage: DRUG NAME: AMPHOTERICIN
     Route: 061
     Dates: start: 20030927, end: 20040311
  50. AMPHOTERICIN B [Concomitant]
     Route: 061
     Dates: start: 20041108
  51. CIPROBAY [Concomitant]
     Route: 048
     Dates: start: 20031009, end: 20031020
  52. PRAVASTATIN SODIUM [Concomitant]
     Dosage: DRUG NAME: PRAVASTATIN
     Route: 048
     Dates: start: 20031014, end: 20031211
  53. PRAVASTATIN SODIUM [Concomitant]
     Route: 048
     Dates: start: 20040313
  54. AMPICILLIN AND SULBACTAM [Concomitant]
     Route: 042
     Dates: start: 20030921, end: 20030922
  55. AMPICILLIN AND SULBACTAM [Concomitant]
     Route: 048
     Dates: start: 20030923, end: 20030923
  56. AMPICILLIN AND SULBACTAM [Concomitant]
     Route: 048
     Dates: start: 20031015, end: 20031023
  57. AMPICILLIN AND SULBACTAM [Concomitant]
     Route: 048
     Dates: start: 20031120
  58. AMPICILLIN AND SULBACTAM [Concomitant]
     Route: 048
     Dates: start: 20040107, end: 20040107
  59. NOVALGIN [Concomitant]
     Route: 048
     Dates: start: 20030922, end: 20030925
  60. GANCICLOVIR [Concomitant]
     Dosage: START DATE REPORTED AS: 25XX2003
     Route: 048
     Dates: start: 20030101
  61. NEORECORMON [Concomitant]
     Dosage: DRUG NAME: NEO-RECORMON
     Route: 058
     Dates: start: 20031005, end: 20031023
  62. ACTRAPID [Concomitant]
     Dosage: FREQUENCY: PN
     Route: 058
     Dates: start: 20031004, end: 20031023
  63. MOXIFLOXACIN HCL [Concomitant]
     Route: 048
     Dates: start: 20031021, end: 20031103
  64. FLUVASTATIN [Concomitant]
     Route: 048
     Dates: start: 20031219, end: 20040311

REACTIONS (2)
  - LYMPHOCELE MARSUPIALISATION [None]
  - WOUND INFECTION [None]
